FAERS Safety Report 7979445-9 (Version None)
Quarter: 2011Q4

REPORT INFORMATION
  Report Type: 
  Country: None (occurrence: None)
  Receive Date: 20111214
  Receipt Date: 20111207
  Transmission Date: 20120403
  Serious: Yes (Other)
  Sender: FDA-Public Use
  Company Number: PHHY2010US59230

PATIENT
  Sex: Female

DRUGS (3)
  1. MULTI-VITAMINS [Concomitant]
     Dosage: 1 DF, QD
  2. EXTAVIA [Suspect]
     Indication: MULTIPLE SCLEROSIS
     Dosage: 0.25 MG, QOD
     Route: 058
     Dates: start: 20100315
  3. ASCORBIC ACID [Concomitant]
     Dosage: 2 DF, QD

REACTIONS (4)
  - LIMB DISCOMFORT [None]
  - ERYTHEMA [None]
  - ROAD TRAFFIC ACCIDENT [None]
  - ABASIA [None]
